FAERS Safety Report 13456876 (Version 2)
Quarter: 2017Q2

REPORT INFORMATION
  Report Type: Spontaneous
  Country: US (occurrence: US)
  Receive Date: 20170419
  Receipt Date: 20170606
  Transmission Date: 20170830
  Serious: No
  Sender: FDA-Public Use
  Company Number: US-009507513-1704USA007789

PATIENT
  Age: 67 Year
  Sex: Female

DRUGS (2)
  1. ZEPATIER [Suspect]
     Active Substance: ELBASVIR\GRAZOPREVIR
     Indication: HEPATITIS C
     Dosage: 50/100 MG, DAILY
     Route: 048
     Dates: start: 20170216
  2. REBETOL [Suspect]
     Active Substance: RIBAVIRIN
     Dosage: UNK
     Route: 048

REACTIONS (5)
  - Lethargy [Unknown]
  - Anaemia [Unknown]
  - Dizziness [Unknown]
  - Irritability [Unknown]
  - Asthenia [Unknown]

NARRATIVE: CASE EVENT DATE: 20170401
